FAERS Safety Report 9956379 (Version 2)
Quarter: 2014Q2

REPORT INFORMATION
  Report Type: Report from Study
  Country: US (occurrence: US)
  Receive Date: 20140304
  Receipt Date: 20140425
  Transmission Date: 20141212
  Serious: Yes (Other)
  Sender: FDA-Public Use
  Company Number: US-ROCHE-1353692

PATIENT
  Sex: Male

DRUGS (7)
  1. XOLAIR [Suspect]
     Indication: ASTHMA
     Route: 058
  2. ALBUTEROL [Concomitant]
  3. EPIPEN [Concomitant]
  4. FLONASE [Concomitant]
  5. SPIRIVA [Concomitant]
  6. SYMBICORT [Concomitant]
  7. XALATAN [Concomitant]

REACTIONS (17)
  - Syncope [Unknown]
  - Expiratory reserve volume abnormal [Unknown]
  - Sinus congestion [Unknown]
  - Productive cough [Unknown]
  - Bronchiectasis [Unknown]
  - Wheezing [Unknown]
  - Upper-airway cough syndrome [Unknown]
  - Paranasal sinus hypersecretion [Unknown]
  - Cough [Unknown]
  - Lung hyperinflation [Unknown]
  - Nasopharyngitis [Unknown]
  - Sputum discoloured [Unknown]
  - Blood pressure increased [Unknown]
  - Blood immunoglobulin E increased [Unknown]
  - Drug ineffective [Unknown]
  - Pruritus [Unknown]
  - Respiratory disorder [Unknown]
